FAERS Safety Report 6056356-X (Version None)
Quarter: 2009Q1

REPORT INFORMATION
  Report Type: 
  Country: None (occurrence: None)
  Receive Date: 20090129
  Receipt Date: 20090120
  Transmission Date: 20090719
  Serious: Yes (Hospitalization)
  Sender: FDA-Public Use
  Company Number: JP-BRISTOL-MYERS SQUIBB COMPANY-14482442

PATIENT
  Age: 74 Year
  Sex: Female

DRUGS (4)
  1. SINEMET [Suspect]
     Route: 048
  2. COLD REMEDY [Interacting]
     Route: 048
  3. DEPAS [Concomitant]
  4. PAXIL [Concomitant]

REACTIONS (2)
  - DRUG INTERACTION [None]
  - TARDIVE DYSKINESIA [None]
